FAERS Safety Report 7014813-3 (Version None)
Quarter: 2010Q3

REPORT INFORMATION
  Report Type: 
  Country: None (occurrence: None)
  Receive Date: 20100927
  Receipt Date: 20100722
  Transmission Date: 20110219
  Serious: Yes (Hospitalization)
  Sender: FDA-Public Use
  Company Number: CH-BAYER-201032122GPV

PATIENT
  Age: 51 Year
  Sex: Female

DRUGS (3)
  1. NEXAVAR [Suspect]
     Indication: RECTAL CANCER
     Route: 048
     Dates: start: 20100614, end: 20100709
  2. CAPECITABINE [Suspect]
     Indication: RECTAL CANCER
     Route: 048
     Dates: start: 20100614, end: 20100709
  3. DOMPERIDON [Concomitant]
     Route: 048
     Dates: start: 20100614

REACTIONS (2)
  - ABDOMINAL PAIN [None]
  - GASTROENTERITIS RADIATION [None]
